FAERS Safety Report 25281802 (Version 1)
Quarter: 2025Q2

REPORT INFORMATION
  Report Type: Report from Study
  Country: US (occurrence: US)
  Receive Date: 20250508
  Receipt Date: 20250508
  Transmission Date: 20250716
  Serious: No
  Sender: ACADIA PHARMACEUTICALS
  Company Number: US-ACADIA PHARMACEUTICALS INC.-ACA-2025-PIM-005105

PATIENT
  Age: 84 Year
  Sex: Male

DRUGS (24)
  1. NUPLAZID [Suspect]
     Active Substance: PIMAVANSERIN TARTRATE
     Indication: Parkinson^s disease
     Dosage: 34 MILLIGRAM, QD
     Route: 048
     Dates: start: 20250402, end: 20250416
  2. ASPIRIN [Concomitant]
     Active Substance: ASPIRIN
  3. BENAZEPRIL [Concomitant]
     Active Substance: BENAZEPRIL HYDROCHLORIDE
  4. BISACODYL [Concomitant]
     Active Substance: BISACODYL
  5. BUMETANIDE [Concomitant]
     Active Substance: BUMETANIDE
  6. CARBIDOPA\LEVODOPA [Concomitant]
     Active Substance: CARBIDOPA\LEVODOPA
  7. FLEET ENEMA [Concomitant]
     Active Substance: SODIUM PHOSPHATE, DIBASIC\SODIUM PHOSPHATE, MONOBASIC
  8. FLOMAX [Concomitant]
     Active Substance: TAMSULOSIN HYDROCHLORIDE
  9. LANSOPRAZOLE [Concomitant]
     Active Substance: LANSOPRAZOLE
  10. LIDOCAINE [Concomitant]
     Active Substance: LIDOCAINE
  11. LUBIPROSTONE [Concomitant]
     Active Substance: LUBIPROSTONE
  12. METOPROLOL SUCCINATE [Concomitant]
     Active Substance: METOPROLOL SUCCINATE
  13. MICONAZOLE NITRATE [Concomitant]
     Active Substance: MICONAZOLE NITRATE
  14. MILK OF MAGNESIA [Concomitant]
     Active Substance: MAGNESIUM HYDROXIDE
  15. MIRALAX [Concomitant]
     Active Substance: POLYETHYLENE GLYCOL 3350
  16. NORVASC [Concomitant]
     Active Substance: AMLODIPINE BESYLATE
  17. OXYBUTYNIN [Concomitant]
     Active Substance: OXYBUTYNIN
  18. PLAVIX [Concomitant]
     Active Substance: CLOPIDOGREL BISULFATE
  19. PROSCAR [Concomitant]
     Active Substance: FINASTERIDE
  20. SENNA [Concomitant]
     Active Substance: SENNOSIDES
  21. TYLENOL [Concomitant]
     Active Substance: ACETAMINOPHEN
  22. ZETIA [Concomitant]
     Active Substance: EZETIMIBE
  23. ZOLOFT [Concomitant]
     Active Substance: SERTRALINE HYDROCHLORIDE
  24. XANAX [Concomitant]
     Active Substance: ALPRAZOLAM
     Indication: Aggression

REACTIONS (2)
  - Aggression [Recovered/Resolved]
  - Rash [Recovered/Resolved]

NARRATIVE: CASE EVENT DATE: 20250403
